FAERS Safety Report 4965793-3 (Version None)
Quarter: 2006Q2

REPORT INFORMATION
  Report Type: 
  Country: None (occurrence: None)
  Receive Date: 20060406
  Receipt Date: 20060406
  Transmission Date: 20061013
  Serious: No
  Sender: FDA-Public Use
  Company Number: None

PATIENT
  Sex: Male

DRUGS (1)
  1. AMPHETAMINE AND DEXTROAMPHETAMINE SALTS [Suspect]
     Indication: ATTENTION DEFICIT/HYPERACTIVITY DISORDER
     Dosage: 20 MG QID PO
     Route: 048
     Dates: start: 20060328, end: 20060330

REACTIONS (4)
  - DRUG DISPENSING ERROR [None]
  - DRUG INEFFECTIVE [None]
  - FEELING ABNORMAL [None]
  - WRONG DRUG ADMINISTERED [None]
